FAERS Safety Report 5504223-X (Version None)
Quarter: 2007Q4

REPORT INFORMATION
  Report Type: 
  Country: None (occurrence: None)
  Receive Date: 20071101
  Receipt Date: 20071025
  Transmission Date: 20080405
  Serious: Yes (Hospitalization, Other)
  Sender: FDA-Public Use
  Company Number: US-ELI_LILLY_AND_COMPANY-US200710003479

PATIENT
  Sex: Female

DRUGS (11)
  1. FORTEO [Suspect]
     Indication: OSTEOPOROSIS
     Dates: start: 20070101
  2. FORTEO [Suspect]
     Dates: start: 20070801
  3. REGLAN [Concomitant]
  4. K-TAB [Concomitant]
  5. CIPRO [Concomitant]
  6. COZAAR [Concomitant]
  7. SENOKOT [Concomitant]
  8. VITAMIN D [Concomitant]
  9. CALTRATE [Concomitant]
  10. ATENOLOL [Concomitant]
     Indication: BLOOD PRESSURE
  11. FLEXERIL [Concomitant]

REACTIONS (6)
  - BACK PAIN [None]
  - COMPRESSION FRACTURE [None]
  - FALL [None]
  - MEDICAL DEVICE IMPLANTATION [None]
  - MOBILITY DECREASED [None]
  - THORACIC VERTEBRAL FRACTURE [None]
